FAERS Safety Report 9185346 (Version 1)
Quarter: 2012Q4

REPORT INFORMATION
  Report Type: 
  Country: DE (occurrence: DE)
  Receive Date: 20121101
  Receipt Date: 20121101
  Transmission Date: 20130627
  Serious: Yes (Other)
  Sender: FDA-Public Use
  Company Number: DE-PFIZER INC-2012268696

PATIENT
  Age: 35 Year
  Sex: Male

DRUGS (1)
  1. ZOLOFT [Suspect]
     Indication: OBSESSIVE-COMPULSIVE DISORDER
     Dosage: 25 mg, 1x/day

REACTIONS (5)
  - Blood creatine phosphokinase increased [Unknown]
  - Apathy [Unknown]
  - Cognitive disorder [Unknown]
  - Performance status decreased [Unknown]
  - Somnolence [Unknown]
